FAERS Safety Report 9550955 (Version 3)
Quarter: 2019Q3

REPORT INFORMATION
  Report Type: Report from Study
  Country: US (occurrence: US)
  Receive Date: 20130924
  Receipt Date: 20190807
  Transmission Date: 20191005
  Serious: No
  Sender: FDA-Public Use
  Company Number: US-SANOFI-AVENTIS-2013SA050529

PATIENT
  Age: 44 Year
  Sex: Female

DRUGS (9)
  1. ALLEGRA [Concomitant]
     Active Substance: FEXOFENADINE HYDROCHLORIDE
     Dosage: 180 MG,UNK
  2. IBUPROFEN. [Concomitant]
     Active Substance: IBUPROFEN
     Dosage: 600 MG,UNK
  3. DEXTRIN [Concomitant]
     Active Substance: ICODEXTRIN
     Dosage: DRINK MIX POWDER
  4. VACCINIUM MACROCARPON [Concomitant]
     Active Substance: CRANBERRY
     Dosage: 500 MG,UNK
  5. TERIFLUNOMIDE. [Suspect]
     Active Substance: TERIFLUNOMIDE
     Indication: MULTIPLE SCLEROSIS
     Dosage: 14 MG,QD
     Route: 048
     Dates: start: 20130325
  6. LEVOTHROID [Concomitant]
     Active Substance: LEVOTHYROXINE SODIUM
     Dosage: 25 UG,UNK
  7. CYCLOBENZAPRINE HYDROCHLORIDE. [Concomitant]
     Active Substance: CYCLOBENZAPRINE HYDROCHLORIDE
     Dosage: 10 MG,UNK
  8. VITAMINS NOS [Concomitant]
     Active Substance: VITAMINS
     Dosage: UNK
  9. CALCIUM CITRATE;ERGOCALCIFEROL [Concomitant]
     Dosage: UNK

REACTIONS (7)
  - Mental disorder [Not Recovered/Not Resolved]
  - Communication disorder [Unknown]
  - Memory impairment [Unknown]
  - Nausea [Unknown]
  - Speech disorder [Unknown]
  - Alopecia [Recovered/Resolved]
  - Hypertension [Recovering/Resolving]

NARRATIVE: CASE EVENT DATE: 201303
